FAERS Safety Report 21142518 (Version 1)
Quarter: 2022Q3

REPORT INFORMATION
  Report Type: Spontaneous
  Country: US (occurrence: US)
  Receive Date: 20220728
  Receipt Date: 20220728
  Transmission Date: 20221026
  Serious: No
  Sender: FDA-Public Use
  Company Number: US-JNJFOC-20220741384

PATIENT
  Age: 84 Year
  Sex: Female

DRUGS (4)
  1. IMODIUM [Suspect]
     Active Substance: LOPERAMIDE HYDROCHLORIDE
     Indication: Product used for unknown indication
     Route: 065
  2. TYVASO [Suspect]
     Active Substance: TREPROSTINIL
     Indication: Pulmonary arterial hypertension
     Dosage: INHALATION
     Route: 065
     Dates: start: 20220518
  3. TYVASO [Suspect]
     Active Substance: TREPROSTINIL
     Dosage: INHALATION
     Route: 065
     Dates: start: 2022, end: 2022
  4. TYVASO [Suspect]
     Active Substance: TREPROSTINIL
     Dosage: INHALATION
     Route: 065
     Dates: start: 2022, end: 20220714

REACTIONS (7)
  - Hot flush [Unknown]
  - Hyperhidrosis [Unknown]
  - Lethargy [Unknown]
  - Discomfort [Unknown]
  - Condition aggravated [Unknown]
  - Therapeutic response decreased [Not Recovered/Not Resolved]
  - Diarrhoea [Unknown]

NARRATIVE: CASE EVENT DATE: 20220518
